FAERS Safety Report 20616264 (Version 1)
Quarter: 2022Q1

REPORT INFORMATION
  Report Type: Spontaneous
  Country: US (occurrence: None)
  Receive Date: 20220319
  Receipt Date: 20220319
  Transmission Date: 20220423
  Serious: Yes (Hospitalization)
  Sender: FDA-Public Use
  Company Number: None

PATIENT
  Sex: Female
  Weight: 62.5 kg

DRUGS (9)
  1. CYCLOPHOSPHAMIDE [Suspect]
     Active Substance: CYCLOPHOSPHAMIDE
     Dates: end: 20220223
  2. CYTARABINE [Suspect]
     Active Substance: CYTARABINE
     Dates: end: 20220305
  3. THIOGUANINE ANHYDROUS [Suspect]
     Active Substance: THIOGUANINE ANHYDROUS
     Dates: end: 20220308
  4. VINCRISTINE SULFATE [Suspect]
     Active Substance: VINCRISTINE SULFATE
     Dates: end: 20220316
  5. DEXAMETHASONE [Suspect]
     Active Substance: DEXAMETHASONE
     Dates: end: 20220207
  6. DOXORUBICIN HYDROCHLORIDE [Suspect]
     Active Substance: DOXORUBICIN HYDROCHLORIDE
     Dates: end: 20220201
  7. METHOTREXATE [Suspect]
     Active Substance: METHOTREXATE
     Indication: Drug therapy
     Dates: end: 20220303
  8. ONCASPAR [Suspect]
     Active Substance: PEGASPARGASE
     Dates: end: 20220309
  9. RITUXIMAB [Suspect]
     Active Substance: RITUXIMAB
     Dates: end: 20220125

REACTIONS (9)
  - Confusional state [None]
  - Slow response to stimuli [None]
  - Pyrexia [None]
  - Hypotension [None]
  - Blood pressure systolic decreased [None]
  - Tachycardia [None]
  - Febrile neutropenia [None]
  - Septic shock [None]
  - Haemoglobin decreased [None]

NARRATIVE: CASE EVENT DATE: 20220317
